FAERS Safety Report 4561878-4 (Version None)
Quarter: 2005Q1

REPORT INFORMATION
  Report Type: 
  Country: None (occurrence: None)
  Receive Date: 20050125
  Receipt Date: 20050111
  Transmission Date: 20050727
  Serious: Yes (Death, Hospitalization, Other)
  Sender: FDA-Public Use
  Company Number: US-SHR-03-001467

PATIENT
  Age: 73 Year
  Sex: Male

DRUGS (1)
  1. ULTRAVIST 300 [Suspect]
     Indication: ANGIOGRAM
     Dosage: 125 ML, 1 DOSE, INTRAVENOUS
     Route: 042
     Dates: start: 20030123, end: 20030123

REACTIONS (11)
  - ANAPHYLACTIC REACTION [None]
  - ANOXIC ENCEPHALOPATHY [None]
  - CARDIAC ARREST [None]
  - COMA [None]
  - CONFUSIONAL STATE [None]
  - CONTRAST MEDIA REACTION [None]
  - DIZZINESS POSTURAL [None]
  - FACE OEDEMA [None]
  - LARYNGEAL OEDEMA [None]
  - RESPIRATORY ARREST [None]
  - VENTRICULAR TACHYCARDIA [None]
